FAERS Safety Report 9166414 (Version 2)
Quarter: 2013Q2

REPORT INFORMATION
  Report Type: Report from Study
  Country: US (occurrence: US)
  Receive Date: 20130315
  Receipt Date: 20130423
  Transmission Date: 20140414
  Serious: Yes (Hospitalization)
  Sender: FDA-Public Use
  Company Number: US-US-EMD SERONO, INC.-7198724

PATIENT
  Age: 52 Year
  Sex: Female
  Weight: 94 kg

DRUGS (2)
  1. REBIF [Suspect]
     Indication: MULTIPLE SCLEROSIS
     Route: 058
     Dates: start: 20090812
  2. FOLIC ACID [Concomitant]
     Indication: BLOOD HOMOCYSTEINE INCREASED
     Route: 048

REACTIONS (7)
  - Cardiac disorder [Unknown]
  - Hypertension [Recovered/Resolved]
  - Tooth extraction [Unknown]
  - Sinusitis [Not Recovered/Not Resolved]
  - Feeling of despair [Unknown]
  - Stress [Unknown]
  - Fatigue [Unknown]
